FAERS Safety Report 20942921 (Version 1)
Quarter: 2022Q2

REPORT INFORMATION
  Report Type: Spontaneous
  Country: US (occurrence: US)
  Receive Date: 20220610
  Receipt Date: 20220610
  Transmission Date: 20220721
  Serious: Yes (Other)
  Sender: FDA-Public Use
  Company Number: US-AstraZeneca-2022A206985

PATIENT

DRUGS (3)
  1. GOSERELIN [Suspect]
     Active Substance: GOSERELIN
     Indication: Salivary gland cancer
     Dosage: 3.6 MG SUBCUTANEOUSLY ONCE 28 DAYS
     Route: 058
  2. ZOLADEX [Suspect]
     Active Substance: GOSERELIN ACETATE
     Indication: Salivary gland cancer
     Dosage: UNK
     Route: 065
  3. APALUTAMIDE [Suspect]
     Active Substance: APALUTAMIDE
     Indication: Salivary gland cancer
     Dosage: 240 MILLIGRAM, QD
     Route: 048

REACTIONS (1)
  - Leukopenia [Unknown]
